FAERS Safety Report 9408588 (Version 1)
Quarter: 2013Q3

REPORT INFORMATION
  Report Type: Spontaneous
  Country: US (occurrence: US)
  Receive Date: 20130718
  Receipt Date: 20130718
  Transmission Date: 20140515
  Serious: No
  Sender: FDA-Public Use
  Company Number: US-ASTELLAS-2013US006366

PATIENT
  Age: 58 Year
  Sex: Female
  Weight: 70 kg

DRUGS (3)
  1. VESICARE [Suspect]
     Indication: HYPERTONIC BLADDER
     Dosage: 5 MG, UID/QD
     Route: 048
     Dates: start: 20090605, end: 20130605
  2. VESICARE [Suspect]
     Indication: MIXED INCONTINENCE
  3. DICYCLOMINE                        /00068601/ [Concomitant]
     Indication: ABDOMINAL DISCOMFORT
     Dosage: 20 MG, UID/QD
     Route: 048
     Dates: start: 20110605

REACTIONS (2)
  - Off label use [Unknown]
  - Drug ineffective [Unknown]
